FAERS Safety Report 8760771 (Version 1)
Quarter: 2012Q4

REPORT INFORMATION
  Report Type: 
  Country: US (occurrence: US)
  Receive Date: 20120830
  Receipt Date: 20120830
  Transmission Date: 20130627
  Serious: Yes (Other)
  Sender: FDA-Public Use
  Company Number: US-BAYER-2012-089724

PATIENT
  Age: 11 Year
  Sex: Male
  Weight: 38 kg

DRUGS (4)
  1. RID 1-2-3 SYSTEM [Suspect]
     Indication: LICE INFESTATION
     Dosage: Shampoo
     Route: 061
     Dates: start: 20120823, end: 20120823
  2. RID 1-2-3 SYSTEM [Suspect]
     Indication: LICE INFESTATION
     Dosage: Gel
     Route: 061
     Dates: start: 20120823, end: 20120823
  3. RID 1-2-3 SYSTEM [Suspect]
     Indication: LICE INFESTATION
     Dosage: Spray
     Route: 061
     Dates: start: 20120823, end: 20120823
  4. ALBUTEROL [Concomitant]

REACTIONS (3)
  - Asthma [Recovered/Resolved]
  - Cough [Recovered/Resolved]
  - Dyspnoea [Recovered/Resolved]
